FAERS Safety Report 8974726 (Version 1)
Quarter: 2012Q4

REPORT INFORMATION
  Report Type: 
  Country: JP (occurrence: JP)
  Receive Date: 20121219
  Receipt Date: 20121219
  Transmission Date: 20130627
  Serious: Yes (Other)
  Sender: FDA-Public Use
  Company Number: JP-009507513-2012SP025624

PATIENT
  Age: 46 Year
  Sex: Male
  Weight: 70 kg

DRUGS (6)
  1. PEGINTRON [Suspect]
     Indication: CHRONIC HEPATITIS C
     Dosage: 1.5microgram per kilogram, QW
     Route: 058
     Dates: start: 20120222, end: 20120424
  2. REBETOL [Suspect]
     Indication: CHRONIC HEPATITIS C
     Dosage: 800 mg, QD
     Route: 048
     Dates: start: 20120222, end: 20120424
  3. TELAVIC [Suspect]
     Indication: CHRONIC HEPATITIS C
     Dosage: 2250 mg, QD
     Route: 048
     Dates: start: 20120222, end: 20120424
  4. CALONAL [Concomitant]
     Indication: PRODUCT USED FOR UNKNOWN INDICATION
     Dosage: Dosage: As needed FORMULATION-POR-DETAILS UNKNOWN
     Route: 048
  5. ZYLORIC [Concomitant]
     Indication: HYPERURICAEMIA
     Dosage: UPDATE(14JUN2012)
     Route: 048
     Dates: start: 20120224, end: 20120424
  6. ALLEGRA [Concomitant]
     Indication: RASH
     Dosage: UPDATE(14JUN2012)
     Route: 048
     Dates: start: 20120224, end: 20120424

REACTIONS (1)
  - Retinal exudates [Recovered/Resolved]
